FAERS Safety Report 4588649-7 (Version None)
Quarter: 2005Q1

REPORT INFORMATION
  Report Type: 
  Country: None (occurrence: None)
  Receive Date: 20050222
  Receipt Date: 20050218
  Transmission Date: 20050727
  Serious: Yes (Life-Threatening, Hospitalization)
  Sender: FDA-Public Use
  Company Number: PHRM2005FR00847

PATIENT
  Age: 0 Day
  Sex: Female

DRUGS (11)
  1. DEPAMIDE [Suspect]
     Dosage: UNK, UNK
     Route: 064
     Dates: start: 20040501, end: 20040601
  2. DEPAMIDE [Suspect]
     Route: 064
     Dates: start: 20050114
  3. VALIUM [Suspect]
     Dosage: UNK, UNK
     Route: 064
     Dates: start: 20050114
  4. TEMESTA [Interacting]
     Dosage: UNK, UNK
     Route: 064
     Dates: end: 20040601
  5. TEMESTA [Interacting]
     Dosage: UNK, UNK
     Route: 064
     Dates: start: 20041222, end: 20050113
  6. IXEL [Concomitant]
     Route: 064
     Dates: end: 20040601
  7. LARGACTIL [Interacting]
     Route: 064
     Dates: start: 20041222, end: 20041222
  8. LEXOMIL [Interacting]
     Route: 064
     Dates: start: 20041222, end: 20041222
  9. IMOVANE [Concomitant]
     Route: 064
     Dates: start: 20050113, end: 20050114
  10. THERALENE [Concomitant]
     Route: 064
     Dates: start: 20050113, end: 20050114
  11. CLOZARIL [Suspect]
     Dosage: UNK, UNK
     Route: 064
     Dates: start: 20040501

REACTIONS (8)
  - ANTIPSYCHOTIC DRUG LEVEL ABOVE THERAPEUTIC [None]
  - APGAR SCORE LOW [None]
  - DRUG EXPOSURE DURING PREGNANCY [None]
  - HYPOTONIA NEONATAL [None]
  - LIFE SUPPORT [None]
  - NEONATAL RESPIRATORY DISTRESS SYNDROME [None]
  - SOMNOLENCE NEONATAL [None]
  - VOMITING NEONATAL [None]
